FAERS Safety Report 11251725 (Version 1)
Quarter: 2015Q3

REPORT INFORMATION
  Report Type: Spontaneous
  Country: US (occurrence: US)
  Receive Date: 20150708
  Receipt Date: 20150708
  Transmission Date: 20151125
  Serious: No
  Sender: FDA-Public Use
  Company Number: US-ELI_LILLY_AND_COMPANY-US201206006219

PATIENT
  Age: 60 Year
  Sex: Male

DRUGS (1)
  1. PROZAC [Suspect]
     Active Substance: FLUOXETINE HYDROCHLORIDE
     Indication: DEPRESSION
     Dosage: 40 MG, QD

REACTIONS (7)
  - Sexual dysfunction [Recovered/Resolved]
  - Scrotal disorder [Recovered/Resolved]
  - Mood swings [Unknown]
  - Toothache [Recovered/Resolved]
  - Drug ineffective [Unknown]
  - Scrotal pain [Recovered/Resolved]
  - Intentional product misuse [Unknown]
